FAERS Safety Report 26189113 (Version 1)
Quarter: 2025Q4

REPORT INFORMATION
  Report Type: Spontaneous
  Country: US (occurrence: US)
  Receive Date: 20251223
  Receipt Date: 20251223
  Transmission Date: 20260118
  Serious: No
  Sender: AMGEN
  Company Number: US-AMGEN-USASP2025247538

PATIENT

DRUGS (1)
  1. PAVBLU [Suspect]
     Active Substance: AFLIBERCEPT-AYYH
     Indication: Product used for unknown indication
     Dosage: UNK
     Route: 065

REACTIONS (1)
  - Product label confusion [Unknown]
